FAERS Safety Report 8402423 (Version 2)
Quarter: 2013Q1

REPORT INFORMATION
  Report Type: Not Available
  Country: NL (occurrence: NL)
  Receive Date: 20120213
  Receipt Date: 20130128
  Transmission Date: 20140127
  Serious: Yes (Other)
  Sender: FDA-Public Use
  Company Number: NL-ASTELLAS-2012EU000977

PATIENT
  Age: 75 Year
  Sex: Male
  Weight: 70 kg

DRUGS (4)
  1. AVODART [Suspect]
     Indication: BENIGN PROSTATIC HYPERPLASIA
     Dosage: 0.5 MG, UID/QD
     Route: 065
     Dates: start: 20110216
  2. ALFUZOSIN [Suspect]
     Indication: BENIGN PROSTATIC HYPERPLASIA
     Dosage: 2.5 MG, UID/QD
     Route: 065
     Dates: start: 20110216
  3. VIAGRA [Suspect]
     Dosage: 1 DF, UID/QD
     Route: 065
  4. VESICARE [Suspect]
     Indication: BENIGN PROSTATIC HYPERPLASIA
     Dosage: 5 MG, UID/QD
     Route: 065
     Dates: start: 20110216

REACTIONS (1)
  - Convulsion [Unknown]
